FAERS Safety Report 13991910 (Version 1)
Quarter: 2017Q3

REPORT INFORMATION
  Report Type: Spontaneous
  Country: US (occurrence: US)
  Receive Date: 20170920
  Receipt Date: 20170920
  Transmission Date: 20171128
  Serious: No
  Sender: FDA-Public Use
  Company Number: US-JNJFOC-20170809098

PATIENT
  Sex: Female

DRUGS (1)
  1. STELARA [Suspect]
     Active Substance: USTEKINUMAB
     Indication: CROHN^S DISEASE
     Route: 058

REACTIONS (6)
  - Abdominal pain [Unknown]
  - Anaemia [Unknown]
  - Diarrhoea [Unknown]
  - Fibromyalgia [Unknown]
  - Nausea [Unknown]
  - Asthenia [Unknown]
